FAERS Safety Report 6286726-6 (Version None)
Quarter: 2009Q3

REPORT INFORMATION
  Report Type: 
  Country: None (occurrence: None)
  Receive Date: 20090728
  Receipt Date: 20090715
  Transmission Date: 20100115
  Serious: Yes (Death, Other)
  Sender: FDA-Public Use
  Company Number: US-TYCO HEALTHCARE/MALLINCKRODT-T200900873

PATIENT
  Sex: Female

DRUGS (38)
  1. OPTIMARK [Suspect]
     Indication: NUCLEAR MAGNETIC RESONANCE IMAGING BRAIN
     Dosage: 10 ML, SINGLE
     Dates: start: 20030121, end: 20030121
  2. OMNISCAN [Suspect]
     Indication: NUCLEAR MAGNETIC RESONANCE IMAGING
     Dosage: 10 ML, SINGLE
     Dates: start: 20000612, end: 20000612
  3. OMNISCAN [Suspect]
     Dosage: 10 ML, SINGLE
     Dates: start: 20001020, end: 20001020
  4. OMNISCAN [Suspect]
     Dosage: 20 ML, SINGLE
     Dates: start: 20010125, end: 20010125
  5. OMNISCAN [Suspect]
     Dosage: 20 ML, SINGLE
     Dates: start: 20040312, end: 20040312
  6. OMNISCAN [Suspect]
     Dosage: 10 ML, SINGLE
     Dates: start: 20060406, end: 20060406
  7. OMNISCAN [Suspect]
     Dosage: 15 ML, SINGLE
     Dates: start: 20060720, end: 20060720
  8. HEPARIN [Suspect]
  9. PLAQUENIL [Concomitant]
     Dosage: 200 MG, BID
  10. CALCITRIOL [Concomitant]
     Dosage: 2 MCG/ML, (WITH DIALYSIS)
  11. FOSRENOL [Concomitant]
     Dosage: 1 GM, TID
  12. PLAVIX [Concomitant]
     Dosage: 75 MG, QD
  13. NEPHRO-VITE                        /02375601/ [Concomitant]
     Dosage: UNK
  14. SODIUM BICARBONATE [Concomitant]
     Dosage: 650 MG, BID
  15. ALUMINUM HYDROXIDE GEL [Concomitant]
     Dosage: 30 ML, QD
  16. PREDNISONE [Concomitant]
     Dosage: 10 MG, QD
  17. KAYEXALATE [Concomitant]
     Dosage: 30 ML, EVERY MONDAY
  18. OMEPRAZOLE [Concomitant]
     Dosage: 20 MG, QD
  19. NORTRIPTYLINE HCL [Concomitant]
     Dosage: 50 MG, 2 AT BEDTIME
  20. AMIODARONE [Concomitant]
     Dosage: 200 MG, QD
  21. ZOCOR [Concomitant]
     Dosage: 10 MG, 1 AT BEDTIME
  22. METOPROLOL TARTRATE [Concomitant]
     Dosage: 100 MG, BID
  23. NEURONTIN [Concomitant]
     Dosage: 300 MG, QD
  24. METHADONE HCL [Concomitant]
     Dosage: 10 MG, QD
  25. TYLENOL (CAPLET) [Concomitant]
     Dosage: 325 MG, PRN
  26. NITRO                              /00003201/ [Concomitant]
     Dosage: 0.4 MG, QID
  27. DULCOLAX                           /00064401/ [Concomitant]
     Dosage: 10 MG, PRN
  28. PHENERGAN HCL [Concomitant]
     Dosage: 25 MG, PRN
  29. BENADRYL [Concomitant]
     Dosage: 25 MG, PRN
  30. IMODIUM                            /00384302/ [Concomitant]
     Dosage: 2 MG, PRN
  31. VICODIN [Concomitant]
     Dosage: 2 TABLETS EVERY 4 HRS AS NEEDED
  32. AMBIEN [Concomitant]
     Dosage: 10 MG, PRN
  33. CLONIDINE [Concomitant]
     Dosage: 0.1 MG, QD
  34. DUONEB [Concomitant]
     Dosage: UNK
  35. PROCRIT                            /00909301/ [Concomitant]
  36. EPOGEN [Concomitant]
  37. IRON [Concomitant]
  38. CHEMOTHERAPEUTICS NOS [Concomitant]

REACTIONS (35)
  - ATRIAL FIBRILLATION [None]
  - ATRIAL SEPTAL DEFECT [None]
  - BONE INFARCTION [None]
  - CANDIDIASIS [None]
  - CARDIAC FAILURE CONGESTIVE [None]
  - CARDIAC VALVE DISEASE [None]
  - CARDIOMEGALY [None]
  - CEREBRAL ARTERY STENOSIS [None]
  - CORONARY ARTERY DISEASE [None]
  - COUGH [None]
  - DECUBITUS ULCER [None]
  - DEPRESSION [None]
  - DYSPEPSIA [None]
  - FALL [None]
  - GASTROINTESTINAL HAEMORRHAGE [None]
  - HEPARIN-INDUCED THROMBOCYTOPENIA [None]
  - HYPOTENSION [None]
  - INTERVERTEBRAL DISC PROTRUSION [None]
  - LEFT VENTRICULAR HYPERTROPHY [None]
  - MASS [None]
  - MIGRAINE [None]
  - MOBILITY DECREASED [None]
  - MULTI-ORGAN FAILURE [None]
  - MYOCARDIAL INFARCTION [None]
  - NAUSEA [None]
  - NEPHROGENIC SYSTEMIC FIBROSIS [None]
  - OEDEMA [None]
  - OSTEOPENIA [None]
  - PERIORBITAL CELLULITIS [None]
  - PERIPHERAL VASCULAR DISORDER [None]
  - PULMONARY OEDEMA [None]
  - PYELONEPHRITIS [None]
  - RIGHT ATRIAL DILATATION [None]
  - SEPSIS [None]
  - VOMITING [None]
